FAERS Safety Report 11464508 (Version 1)
Quarter: 2015Q3

REPORT INFORMATION
  Report Type: Spontaneous
  Country: US (occurrence: US)
  Receive Date: 20150831
  Receipt Date: 20150831
  Transmission Date: 20151125
  Serious: No
  Sender: FDA-Public Use
  Company Number: US-ELI_LILLY_AND_COMPANY-US201106004465

PATIENT
  Age: 29 Year
  Sex: Female

DRUGS (2)
  1. CYMBALTA [Interacting]
     Active Substance: DULOXETINE HYDROCHLORIDE
     Dosage: 30 MG, QD
     Dates: start: 20110609
  2. CYMBALTA [Suspect]
     Active Substance: DULOXETINE HYDROCHLORIDE
     Indication: EYE PAIN
     Dosage: 60 MG, QD
     Dates: start: 2005, end: 2008

REACTIONS (14)
  - Mydriasis [Unknown]
  - Burning sensation [Unknown]
  - Nausea [Unknown]
  - Malaise [Unknown]
  - Depressed mood [Unknown]
  - Anxiety [Unknown]
  - Drug effect decreased [Unknown]
  - Off label use [Not Recovered/Not Resolved]
  - Presyncope [Unknown]
  - Intentional product misuse [Unknown]
  - Paraesthesia [Unknown]
  - Hypoaesthesia [Unknown]
  - Drug interaction [Not Recovered/Not Resolved]
  - Eye pain [Unknown]
